FAERS Safety Report 7315631-9 (Version None)
Quarter: 2011Q1

REPORT INFORMATION
  Report Type: 
  Country: None (occurrence: None)
  Receive Date: 20110225
  Receipt Date: 20110211
  Transmission Date: 20110831
  Serious: Yes (Other)
  Sender: FDA-Public Use
  Company Number: PHHY2011GB11519

PATIENT
  Age: 47 Year
  Sex: Female

DRUGS (2)
  1. OMEPRAZOLE [Concomitant]
     Dates: start: 20060701
  2. ITRACONAZOLE [Suspect]
     Dosage: 200 MG, QD
     Dates: start: 20060701

REACTIONS (9)
  - PULMONARY OEDEMA [None]
  - DRUG INTOLERANCE [None]
  - FATIGUE [None]
  - SPUTUM DISCOLOURED [None]
  - NAUSEA [None]
  - MYCOBACTERIUM TEST POSITIVE [None]
  - DIARRHOEA [None]
  - LUNG ABSCESS [None]
  - ASPERGILLOSIS [None]
